FAERS Safety Report 6233544-0 (Version None)
Quarter: 2009Q2

REPORT INFORMATION
  Report Type: 
  Country: None (occurrence: None)
  Receive Date: 20090615
  Receipt Date: 20090609
  Transmission Date: 20091009
  Serious: Yes (Hospitalization)
  Sender: FDA-Public Use
  Company Number: 2009006025

PATIENT
  Age: 59 Year
  Sex: Male
  Weight: 96.6162 kg

DRUGS (1)
  1. TREANDA [Suspect]
     Indication: CHRONIC LYMPHOCYTIC LEUKAEMIA
     Dosage: 2.5 MG/M2 (70 MG/M2, 1 IN 4 WK), INTRAVENOUS
     Route: 042
     Dates: start: 20090217, end: 20090429

REACTIONS (6)
  - CAPILLARY LEAK SYNDROME [None]
  - HYPERSENSITIVITY [None]
  - HYPOTENSION [None]
  - OEDEMA [None]
  - RENAL FAILURE [None]
  - WEIGHT INCREASED [None]
